FAERS Safety Report 15811003 (Version 1)
Quarter: 2019Q1

REPORT INFORMATION
  Report Type: Spontaneous
  Country: US (occurrence: US)
  Receive Date: 20190111
  Receipt Date: 20190111
  Transmission Date: 20190417
  Serious: No
  Sender: FDA-Public Use
  Company Number: US-TEVA-2018-US-990861

PATIENT
  Sex: Female

DRUGS (1)
  1. PROPRANOLOL TEVA [Suspect]
     Active Substance: PROPRANOLOL HYDROCHLORIDE
     Dosage: EXTENDED RELEASE
     Dates: start: 201811

REACTIONS (2)
  - Gluten sensitivity [Unknown]
  - Eructation [Unknown]

NARRATIVE: CASE EVENT DATE: 201811
